FAERS Safety Report 8927524 (Version 2)
Quarter: 2012Q4

REPORT INFORMATION
  Report Type: 
  Country: JP (occurrence: JP)
  Receive Date: 20121127
  Receipt Date: 20121210
  Transmission Date: 20130627
  Serious: Yes (Death)
  Sender: FDA-Public Use
  Company Number: JP-PFIZER INC-2011156296

PATIENT
  Age: 69 Year
  Sex: Female
  Weight: 53 kg

DRUGS (6)
  1. TEMSIROLIMUS [Suspect]
     Indication: RENAL CELL CARCINOMA
     Dosage: 25 mg, weekly
     Dates: start: 20110329, end: 20110419
  2. CHLOR-TRIMETON [Concomitant]
     Indication: PROPHYLAXIS
     Dosage: 5 mg, weekly
     Route: 042
  3. NOVORAPID [Concomitant]
     Dosage: 3 to 10 units once daily
     Route: 058
  4. FLUITRAN [Concomitant]
     Dosage: 0.5 mg, 1x/day
     Route: 048
  5. LIPITOR [Concomitant]
     Dosage: 10 mg, 1x/day
     Route: 048
  6. AZELNIDIPINE/OLMESARTAN MEDOXOMIL [Concomitant]
     Dosage: 1 DF, 1x/day
     Route: 048

REACTIONS (2)
  - Disease progression [Fatal]
  - Renal cell carcinoma [Fatal]
